FAERS Safety Report 7528263-4 (Version None)
Quarter: 2011Q2

REPORT INFORMATION
  Report Type: 
  Country: None (occurrence: None)
  Receive Date: 20110607
  Receipt Date: 20100929
  Transmission Date: 20111010
  Serious: No
  Sender: FDA-Public Use
  Company Number: US-ASTRAZENECA-2010SE45812

PATIENT
  Age: 46 Year
  Sex: Female

DRUGS (4)
  1. SINGULAIR [Concomitant]
  2. XOPENEX [Concomitant]
  3. PRILOSEC [Suspect]
     Route: 048
  4. PRILOSEC [Suspect]
     Indication: DYSPEPSIA
     Route: 048
     Dates: start: 20100101

REACTIONS (2)
  - WEIGHT INCREASED [None]
  - DYSPEPSIA [None]
